FAERS Safety Report 10416613 (Version 1)
Quarter: 2014Q3

REPORT INFORMATION
  Report Type: Spontaneous
  Country: US (occurrence: None)
  Receive Date: 20140826
  Receipt Date: 20140826
  Transmission Date: 20150326
  Serious: Yes (Hospitalization)
  Sender: FDA-Public Use
  Company Number: 2495539

PATIENT
  Age: 16 Year
  Sex: Female

DRUGS (7)
  1. PROPOFOL. [Suspect]
     Active Substance: PROPOFOL
     Indication: SEDATION
  2. LEVETIRACETAM. [Concomitant]
     Active Substance: LEVETIRACETAM
  3. NORMAL SALINE [Concomitant]
     Active Substance: SODIUM CHLORIDE
  4. SEVOFLURANE. [Concomitant]
     Active Substance: SEVOFLURANE
  5. PROPOFOL. [Suspect]
     Active Substance: PROPOFOL
     Indication: NUCLEAR MAGNETIC RESONANCE IMAGING
  6. COENZYME Q10 [Concomitant]
     Active Substance: UBIDECARENONE
  7. CARNITINE [Concomitant]
     Active Substance: CARNITINE

REACTIONS (9)
  - Dizziness [None]
  - Vomiting [None]
  - MELAS syndrome [None]
  - Metabolic encephalopathy [None]
  - Metabolic acidosis [None]
  - Status epilepticus [None]
  - Visual acuity reduced [None]
  - Headache [None]
  - Haemodynamic instability [None]
